FAERS Safety Report 8956425 (Version 1)
Quarter: 2012Q4

REPORT INFORMATION
  Report Type: 
  Country: DE (occurrence: DE)
  Receive Date: 20121210
  Receipt Date: 20121210
  Transmission Date: 20130627
  Serious: Yes (Hospitalization, Other)
  Sender: FDA-Public Use
  Company Number: DE-TEVA-372352GER

PATIENT
  Age: 79 Year
  Sex: Female

DRUGS (12)
  1. MIRTAZAPINE [Suspect]
     Dosage: 15 Milligram Daily;
     Route: 048
     Dates: start: 20120515, end: 20120609
  2. MIRTAZAPINE [Suspect]
     Dosage: 30 Milligram Daily;
     Route: 048
     Dates: start: 20120610, end: 20120618
  3. VENLAFAXINE [Suspect]
     Dosage: 75 Milligram Daily;
     Route: 048
     Dates: start: 20120619, end: 20120624
  4. VENLAFAXINE [Suspect]
     Dosage: 150 Milligram Daily;
     Route: 048
     Dates: start: 20120625, end: 20120705
  5. VENLAFAXINE [Suspect]
     Dosage: 225 Milligram Daily;
     Route: 048
     Dates: start: 20120706, end: 20120709
  6. VENLAFAXINE [Suspect]
     Dosage: 75 Milligram Daily;
     Route: 048
     Dates: start: 20120710, end: 20120711
  7. VENLAFAXINE [Suspect]
     Dosage: 37.5 Milligram Daily;
     Route: 048
     Dates: start: 20120712, end: 20120719
  8. VENLAFAXINE [Suspect]
     Dosage: 150 Milligram Daily;
     Route: 048
     Dates: start: 20120720, end: 20120723
  9. VENLAFAXINE [Suspect]
     Dosage: 300 Milligram Daily;
     Route: 048
     Dates: start: 20120724
  10. HCTZ [Suspect]
     Dosage: 25 Milligram Daily;
     Route: 048
     Dates: start: 20120727
  11. ASS [Concomitant]
     Dosage: 100 Milligram Daily;
     Route: 048
  12. BISOPROLOL [Concomitant]
     Dosage: 2.5 Milligram Daily;
     Route: 048

REACTIONS (3)
  - Hyponatraemia [Not Recovered/Not Resolved]
  - Hypochloraemia [Not Recovered/Not Resolved]
  - Hypokalaemia [Recovered/Resolved]
